FAERS Safety Report 8313928-7 (Version None)
Quarter: 2012Q2

REPORT INFORMATION
  Report Type: 
  Country: None (occurrence: None)
  Receive Date: 20120426
  Receipt Date: 20120426
  Transmission Date: 20120825
  Serious: No
  Sender: FDA-Public Use
  Company Number: None

PATIENT
  Age: 37 Year
  Sex: Female
  Weight: 48.534 kg

DRUGS (2)
  1. MIRENA [Suspect]
     Indication: CONTRACEPTION
     Dates: start: 20100601, end: 20111103
  2. MIRENA [Suspect]
     Indication: CONTRACEPTION

REACTIONS (11)
  - WEIGHT INCREASED [None]
  - ALOPECIA [None]
  - MIGRAINE [None]
  - RENAL DISORDER [None]
  - PAIN [None]
  - ARTHRALGIA [None]
  - RASH [None]
  - PYELONEPHRITIS [None]
  - FATIGUE [None]
  - URINE ABNORMALITY [None]
  - THYROID FUNCTION TEST ABNORMAL [None]
